FAERS Safety Report 17195409 (Version 4)
Quarter: 2020Q1

REPORT INFORMATION
  Report Type: Report from Study
  Country: US (occurrence: US)
  Receive Date: 20191224
  Receipt Date: 20200319
  Transmission Date: 20200409
  Serious: Yes (Death, Hospitalization)
  Sender: FDA-Public Use
  Company Number: US-ROCHE-2493172

PATIENT
  Age: 52 Year
  Sex: Male

DRUGS (26)
  1. PRS 343 [Suspect]
     Active Substance: CINREBAFUSP ALFA
     Indication: BLADDER TRANSITIONAL CELL CARCINOMA
     Dosage: THERAPY WITH PRS 343 WAS WITHDRAWN IN RESPONSE TO THE TRANSAMINITIS.
     Route: 065
     Dates: start: 20191029
  2. DIPHENHYDRAMINE HYDROCHLORIDE. [Concomitant]
     Active Substance: DIPHENHYDRAMINE HYDROCHLORIDE
     Route: 042
     Dates: start: 20191119, end: 20191119
  3. ACETAMINOPHEN. [Concomitant]
     Active Substance: ACETAMINOPHEN
     Route: 048
     Dates: start: 201907
  4. ONDANSETRON HCL [Concomitant]
     Active Substance: ONDANSETRON HYDROCHLORIDE
     Route: 048
     Dates: start: 20191003
  5. HYDROMORPHONE [Concomitant]
     Active Substance: HYDROMORPHONE
     Route: 042
     Dates: start: 20191119, end: 20191119
  6. MARINOL [Concomitant]
     Active Substance: DRONABINOL
     Route: 048
     Dates: start: 20191021, end: 20191118
  7. LISINOPRIL. [Concomitant]
     Active Substance: LISINOPRIL
     Route: 048
     Dates: start: 201908
  8. MORPHINE SULPHATE [Concomitant]
     Active Substance: MORPHINE SULFATE
     Route: 048
     Dates: start: 20191021
  9. PALONOSETRON. [Concomitant]
     Active Substance: PALONOSETRON HYDROCHLORIDE
     Route: 042
     Dates: start: 201911, end: 201911
  10. PALONOSETRON HCL [Concomitant]
     Active Substance: PALONOSETRON HYDROCHLORIDE
     Route: 042
     Dates: start: 20191119, end: 20191119
  11. FAMOTIDINE. [Concomitant]
     Active Substance: FAMOTIDINE
     Route: 042
     Dates: start: 20191119, end: 20191119
  12. SENNA LAXATIVE [Concomitant]
     Active Substance: SENNOSIDES
     Route: 048
     Dates: start: 20191003
  13. FUROSEMIDE. [Concomitant]
     Active Substance: FUROSEMIDE
     Route: 048
     Dates: start: 20191112
  14. NORVASC [Concomitant]
     Active Substance: AMLODIPINE BESYLATE
     Route: 048
     Dates: start: 20191028
  15. LIDOCAINE. [Concomitant]
     Active Substance: LIDOCAINE
     Route: 061
     Dates: start: 20191028
  16. PREDNISOLONE. [Concomitant]
     Active Substance: PREDNISOLONE
     Route: 048
     Dates: start: 20191204
  17. DILAUDID [Concomitant]
     Active Substance: HYDROMORPHONE HYDROCHLORIDE
     Route: 042
     Dates: start: 20191119, end: 20191119
  18. ACETAMINOPHEN. [Concomitant]
     Active Substance: ACETAMINOPHEN
     Route: 048
     Dates: start: 20191029
  19. ATEZOLIZUMAB. [Suspect]
     Active Substance: ATEZOLIZUMAB
     Indication: BLADDER TRANSITIONAL CELL CARCINOMA
     Dosage: THERAPY WITH ATEZOLIZUMAB WAS WITHDRAWN IN RESPONSE TO THE TRANSAMINITIS: 02/DEC/2019
     Route: 042
     Dates: start: 20191029
  20. DIPHENHYDRAMINE. [Concomitant]
     Active Substance: DIPHENHYDRAMINE
     Route: 042
     Dates: start: 20191029
  21. PALONOSETRON. [Concomitant]
     Active Substance: PALONOSETRON HYDROCHLORIDE
     Route: 042
     Dates: start: 20191119
  22. FAMOTIDINE. [Concomitant]
     Active Substance: FAMOTIDINE
     Route: 042
     Dates: start: 20191029
  23. ACETAMINOPHEN. [Concomitant]
     Active Substance: ACETAMINOPHEN
     Route: 048
     Dates: start: 20191119, end: 20191119
  24. CASTOR OIL. [Concomitant]
     Active Substance: CASTOR OIL
     Indication: CONSTIPATION
     Route: 048
     Dates: start: 20191003
  25. IBUPROFEN. [Concomitant]
     Active Substance: IBUPROFEN
     Indication: BACK PAIN
     Route: 048
     Dates: start: 201907
  26. POTASSIUM CHLORIDE. [Concomitant]
     Active Substance: POTASSIUM CHLORIDE
     Route: 048
     Dates: start: 20191112

REACTIONS (3)
  - Infusion related reaction [Recovered/Resolved]
  - Hepatic failure [Fatal]
  - Transaminases increased [Recovered/Resolved]

NARRATIVE: CASE EVENT DATE: 20191119
